FAERS Safety Report 14169045 (Version 1)
Quarter: 2017Q4

REPORT INFORMATION
  Report Type: Spontaneous
  Country: US (occurrence: US)
  Receive Date: 20171107
  Receipt Date: 20171107
  Transmission Date: 20180321
  Serious: Yes (Other)
  Sender: FDA-Public Use
  Company Number: US-TEVA-822905USA

PATIENT
  Age: 68 Year
  Sex: Female

DRUGS (1)
  1. CROMOGLICIC ACID [Suspect]
     Active Substance: CROMOLYN
     Indication: ASTHMA
     Dosage: 40 MILLIGRAM DAILY;
     Route: 055
     Dates: start: 2016

REACTIONS (3)
  - Ovarian cancer [Not Recovered/Not Resolved]
  - Intentional product use issue [Unknown]
  - Therapeutic response unexpected [Unknown]
